FAERS Safety Report 19154133 (Version 6)
Quarter: 2021Q4

REPORT INFORMATION
  Report Type: Report from Study
  Country: CA (occurrence: CA)
  Receive Date: 20210419
  Receipt Date: 20211221
  Transmission Date: 20220303
  Serious: Yes (Hospitalization, Other)
  Sender: FDA-Public Use
  Company Number: CA-TAKEDA-2021TUS024027

PATIENT
  Age: 68 Year
  Sex: Male

DRUGS (5)
  1. IXAZOMIB [Suspect]
     Active Substance: IXAZOMIB
     Indication: Plasma cell myeloma
     Dosage: 2.3 MILLIGRAM
     Route: 048
     Dates: start: 20210402, end: 20210717
  2. DEXAMETHASONE [Suspect]
     Active Substance: DEXAMETHASONE
     Indication: Plasma cell myeloma
     Dosage: 4 MILLIGRAM, 3/WEEK
     Route: 065
     Dates: start: 20210402
  3. DEXAMETHASONE [Suspect]
     Active Substance: DEXAMETHASONE
     Dosage: 4 MILLIGRAM, 2/WEEK
     Route: 065
  4. ASPIRIN [Suspect]
     Active Substance: ASPIRIN
     Dosage: UNK
  5. CYCLOPHOSPHAMIDE [Suspect]
     Active Substance: CYCLOPHOSPHAMIDE
     Indication: Plasma cell myeloma
     Dosage: UNK
     Route: 065
     Dates: start: 20210402

REACTIONS (19)
  - Cellulitis [Recovering/Resolving]
  - Sepsis [Unknown]
  - Cytopenia [Unknown]
  - Fatigue [Unknown]
  - Muscular weakness [Unknown]
  - Neuropathy peripheral [Unknown]
  - Skin ulcer [Unknown]
  - Bacterial infection [Unknown]
  - Hypoaesthesia [Unknown]
  - Contusion [Unknown]
  - Skin fragility [Unknown]
  - Chest pain [Unknown]
  - Oedema peripheral [Unknown]
  - Pain [Unknown]
  - Depressed mood [Unknown]
  - Skin laceration [Unknown]
  - Rash [Recovered/Resolved]
  - Vision blurred [Unknown]
  - Off label use [Unknown]

NARRATIVE: CASE EVENT DATE: 20210402
